FAERS Safety Report 12145338 (Version 1)
Quarter: 2016Q1

REPORT INFORMATION
  Report Type: Spontaneous
  Country: US (occurrence: US)
  Receive Date: 20160304
  Receipt Date: 20160304
  Transmission Date: 20160526
  Serious: Yes (Other)
  Sender: FDA-Public Use
  Company Number: US-BAYER-2016-041443

PATIENT
  Age: 95 Year
  Sex: Male

DRUGS (1)
  1. MIRALAX [Suspect]
     Active Substance: POLYETHYLENE GLYCOL 3350
     Indication: CONSTIPATION
     Dosage: SOMETIMES LESS THAN FULL AMOUNT, PRN
     Route: 048

REACTIONS (3)
  - Blood urine present [None]
  - Gastrointestinal motility disorder [None]
  - Product use issue [None]
